FAERS Safety Report 9425652 (Version 1)
Quarter: 2013Q3

REPORT INFORMATION
  Report Type: Spontaneous
  Country: DE (occurrence: DE)
  Receive Date: 20130729
  Receipt Date: 20130729
  Transmission Date: 20140515
  Serious: Yes (Congenital Anomaly)
  Sender: FDA-Public Use
  Company Number: DE-TEVA-420453GER

PATIENT
  Age: 1 Day
  Sex: Male

DRUGS (6)
  1. RAMIPRIL [Suspect]
     Route: 064
  2. PRAVASTATIN [Suspect]
     Route: 064
  3. CLOPIDOGREL [Suspect]
     Route: 064
  4. NEPRESOL [Concomitant]
     Route: 064
  5. METOPROLOL [Concomitant]
     Route: 064
  6. ACETYLSALICYLS?URE [Concomitant]
     Dosage: 100 MILLIGRAM DAILY;
     Route: 064

REACTIONS (5)
  - Aortic valve stenosis [Recovered/Resolved with Sequelae]
  - Aorta hypoplasia [Recovered/Resolved with Sequelae]
  - Coarctation of the aorta [Recovered/Resolved with Sequelae]
  - Mitral valve hypoplasia [Recovered/Resolved with Sequelae]
  - Atrial septal defect [Recovered/Resolved with Sequelae]
